FAERS Safety Report 12467780 (Version 3)
Quarter: 2016Q3

REPORT INFORMATION
  Report Type: Spontaneous
  Country: US (occurrence: US)
  Receive Date: 20160615
  Receipt Date: 20160801
  Transmission Date: 20161109
  Serious: Yes (Other)
  Sender: FDA-Public Use
  Company Number: US-GLAXOSMITHKLINE-US2016084607

PATIENT
  Age: 61 Year
  Sex: Female

DRUGS (4)
  1. ADVAIR DISKUS [Suspect]
     Active Substance: FLUTICASONE PROPIONATE\SALMETEROL XINAFOATE
     Indication: ASTHMA
     Dosage: 1 PUFF(S), BID
     Route: 055
     Dates: start: 2006
  2. ALBUTEROL INHALER [Concomitant]
     Active Substance: ALBUTEROL
  3. ADVAIR DISKUS [Suspect]
     Active Substance: FLUTICASONE PROPIONATE\SALMETEROL XINAFOATE
     Dosage: 250/50 UG
  4. PREDNISONE. [Concomitant]
     Active Substance: PREDNISONE

REACTIONS (10)
  - Sinusitis bacterial [Recovered/Resolved]
  - Pneumonia bacterial [Recovered/Resolved]
  - Bacterial infection [Recovered/Resolved]
  - Drug ineffective [Not Recovered/Not Resolved]
  - Upper-airway cough syndrome [Recovered/Resolved]
  - Influenza [Recovered/Resolved]
  - Malaise [Unknown]
  - Cough [Not Recovered/Not Resolved]
  - Multiple allergies [Unknown]
  - Product quality issue [Unknown]

NARRATIVE: CASE EVENT DATE: 201502
